FAERS Safety Report 17325982 (Version 1)
Quarter: 2020Q1

REPORT INFORMATION
  Report Type: Spontaneous
  Country: SE (occurrence: SE)
  Receive Date: 20200127
  Receipt Date: 20200127
  Transmission Date: 20200409
  Serious: Yes (Hospitalization)
  Sender: FDA-Public Use
  Company Number: SE-TAKEDA-2020TUS005228

PATIENT
  Sex: Male

DRUGS (5)
  1. ZOPICLONE [Suspect]
     Active Substance: ZOPICLONE
     Indication: PRODUCT USED FOR UNKNOWN INDICATION
     Dosage: 300 MILLIGRAM
     Route: 048
     Dates: start: 20180323, end: 20180323
  2. PROPAVAN [Suspect]
     Active Substance: PROPIOMAZINE
     Indication: PRODUCT USED FOR UNKNOWN INDICATION
     Dosage: 1000 MILLIGRAM
     Route: 048
     Dates: start: 20180323, end: 20180323
  3. BRINTELLIX [Suspect]
     Active Substance: VORTIOXETINE HYDROBROMIDE
     Indication: PRODUCT USED FOR UNKNOWN INDICATION
     Dosage: UNK
     Route: 048
     Dates: start: 20180323, end: 20180323
  4. ANAFRANIL [Suspect]
     Active Substance: CLOMIPRAMINE HYDROCHLORIDE
     Indication: PRODUCT USED FOR UNKNOWN INDICATION
     Dosage: UNK
     Route: 048
     Dates: start: 20180323, end: 20180323
  5. ARIPIPRAZOLE. [Suspect]
     Active Substance: ARIPIPRAZOLE
     Indication: PRODUCT USED FOR UNKNOWN INDICATION
     Dosage: UNK
     Route: 048
     Dates: start: 20180323, end: 20180323

REACTIONS (3)
  - Dysarthria [Unknown]
  - Intentional self-injury [Unknown]
  - Intentional overdose [Unknown]

NARRATIVE: CASE EVENT DATE: 20180323
